FAERS Safety Report 18223888 (Version 1)
Quarter: 2020Q3

REPORT INFORMATION
  Report Type: Spontaneous
  Country: US (occurrence: US)
  Receive Date: 20200902
  Receipt Date: 20200902
  Transmission Date: 20201103
  Serious: Yes (Hospitalization, Other)
  Sender: FDA-Public Use
  Company Number: US-PURDUE-USA-2020-0164256

PATIENT
  Sex: Male

DRUGS (11)
  1. TRAMADOL. [Suspect]
     Active Substance: TRAMADOL
     Indication: SPINAL CORD INJURY LUMBAR
     Dosage: UNKNOWN
     Route: 048
  2. HYDROCODONE BITARTRATE AND ACETAMINOPHEN [Suspect]
     Active Substance: ACETAMINOPHEN\HYDROCODONE BITARTRATE
     Indication: SPINAL CORD INJURY LUMBAR
     Dosage: UNKNOWN
     Route: 048
  3. OXYCONTIN [Suspect]
     Active Substance: OXYCODONE HYDROCHLORIDE
     Indication: SPINAL CORD INJURY LUMBAR
     Dosage: UNKNOWN
     Route: 048
  4. OXYCODONE HCL TABLETS (RHODES 91?490) [Suspect]
     Active Substance: OXYCODONE HYDROCHLORIDE
     Indication: BACK PAIN
     Dosage: 10 MG, Q4H PRN
     Route: 048
  5. VICOPROFEN [Suspect]
     Active Substance: HYDROCODONE BITARTRATE\IBUPROFEN
     Indication: SPINAL CORD INJURY LUMBAR
     Dosage: UNKNOWN
     Route: 048
  6. DILAUDID [Suspect]
     Active Substance: HYDROMORPHONE HYDROCHLORIDE
     Indication: SPINAL CORD INJURY LUMBAR
     Dosage: UNKNOWN
     Route: 048
  7. MS CONTIN [Suspect]
     Active Substance: MORPHINE SULFATE
     Indication: SPINAL CORD INJURY LUMBAR
     Dosage: UNKNOWN
     Route: 048
  8. MORPHINE SULFATE EXTENDED?RELEASE TABLETS (RHODES 74?769, 74?862) [Suspect]
     Active Substance: MORPHINE SULFATE
     Indication: SPINAL CORD INJURY LUMBAR
     Dosage: UNKNOWN
     Route: 048
  9. MSIR [Suspect]
     Active Substance: MORPHINE SULFATE
     Indication: SPINAL CORD INJURY LUMBAR
     Dosage: UNKNOWN
     Route: 048
  10. OXYCODONE/ ACETAMINOPHEN TABLETS [Suspect]
     Active Substance: ACETAMINOPHEN\OXYCODONE HYDROCHLORIDE
     Indication: SPINAL CORD INJURY LUMBAR
     Dosage: UNKNOWN
     Route: 048
  11. OXYIR [Suspect]
     Active Substance: OXYCODONE HYDROCHLORIDE
     Indication: SPINAL CORD INJURY LUMBAR
     Dosage: UNKNOWN
     Route: 048

REACTIONS (33)
  - Peripheral nerve lesion [Unknown]
  - Impulsive behaviour [Unknown]
  - Spinal pain [Unknown]
  - Drug abuse [Unknown]
  - Gastrointestinal hypomotility [Unknown]
  - Bone density decreased [Unknown]
  - Nerve injury [Unknown]
  - Depression [Unknown]
  - Back pain [Unknown]
  - Delusional perception [Unknown]
  - Drug dependence [Unknown]
  - Peptic ulcer [Unknown]
  - Anxiety [Unknown]
  - Compulsions [Unknown]
  - Arrhythmia [Unknown]
  - Malnutrition [Unknown]
  - Nephrolithiasis [Unknown]
  - Suicidal behaviour [Unknown]
  - Neuropathy peripheral [Unknown]
  - Alopecia [Unknown]
  - Social problem [Unknown]
  - Obsessive thoughts [Unknown]
  - Tooth loss [Unknown]
  - Emotional distress [Unknown]
  - Hepatitis C [Unknown]
  - Weight decreased [Unknown]
  - Gastritis [Unknown]
  - Hypertension [Unknown]
  - Cardiovascular disorder [Unknown]
  - Hypotension [Unknown]
  - Mood swings [Unknown]
  - Haemangioma of liver [Unknown]
  - Self esteem decreased [Unknown]
